FAERS Safety Report 7118413 (Version 1)
Quarter: 2020Q3

REPORT INFORMATION
  Report Type: Report from Study
  Country: US (occurrence: US)
  Receive Date: 20090918
  Receipt Date: 20090918
  Transmission Date: 20201105
  Serious: Yes (Other)
  Sender: FDA-Public Use
  Company Number: US-ROCHE-655395

PATIENT
  Age: 46 Year
  Sex: Female
  Weight: 62.2 kg

DRUGS (1)
  1. IBANDRONIC ACID. [Suspect]
     Active Substance: IBANDRONIC ACID
     Dosage: LAST ADMINISTERED DOSE: 2 SEP 2009
     Route: 048
     Dates: start: 20090415, end: 20090902

REACTIONS (1)
  - Hypophosphataemia [Not Recovered/Not Resolved]

NARRATIVE: CASE EVENT DATE: 20090902
